FAERS Safety Report 8033663-2 (Version None)
Quarter: 2012Q1

REPORT INFORMATION
  Report Type: 
  Country: None (occurrence: None)
  Receive Date: 20120110
  Receipt Date: 20120106
  Transmission Date: 20120608
  Serious: Yes (Other)
  Sender: FDA-Public Use
  Company Number: DK-BAYER-2011-053823

PATIENT
  Age: 68 Year
  Sex: Male
  Weight: 81 kg

DRUGS (6)
  1. OMEPRAZOLE [Concomitant]
     Indication: HYPERCHLORHYDRIA
     Dosage: 20 MG, QD
     Route: 048
     Dates: start: 20070101
  2. FLUTICASONE PROPIONATE/SALMETEROL [Concomitant]
     Dosage: DAILY DOSE 1000 MG
     Route: 045
     Dates: start: 20000101
  3. FLUTICASONE PROPIONATE/SALMETEROL [Concomitant]
     Indication: ASTHMA
     Dosage: 160/1000
     Route: 048
     Dates: start: 20000101
  4. LEVOTHYROXINE SODIUM [Concomitant]
     Indication: HYPOTHYROIDISM
     Dosage: 0.2 MG, QD
     Route: 048
     Dates: start: 20050106
  5. SORAFENIB (RAF KINASE INHIBITOR) [Suspect]
     Indication: THYROID CANCER METASTATIC
     Dosage: 400 MG, BID
     Route: 048
     Dates: start: 20100602, end: 20101112
  6. CANDESARTAN CILEXETIL [Concomitant]
     Indication: HYPERTENSION
     Dosage: 16 MG, QD
     Route: 048
     Dates: start: 20080101

REACTIONS (1)
  - CEREBRAL ISCHAEMIA [None]
